FAERS Safety Report 10955236 (Version 1)
Quarter: 2015Q1

REPORT INFORMATION
  Report Type: Spontaneous
  Country: DE (occurrence: DE)
  Receive Date: 20150326
  Receipt Date: 20150326
  Transmission Date: 20150721
  Serious: Yes (Other)
  Sender: FDA-Public Use
  Company Number: PHHY2015DE035366

PATIENT
  Sex: Female

DRUGS (1)
  1. ACLASTA [Suspect]
     Active Substance: ZOLEDRONIC ACID
     Indication: SPINAL FRACTURE
     Dosage: 5 MG, UNK
     Route: 042
     Dates: start: 201411

REACTIONS (4)
  - Renal impairment [Unknown]
  - Renal pain [Unknown]
  - Arrhythmia [Unknown]
  - Dysuria [Unknown]

NARRATIVE: CASE EVENT DATE: 201411
